FAERS Safety Report 10271427 (Version 2)
Quarter: 2014Q3

REPORT INFORMATION
  Report Type: Spontaneous
  Country: IT (occurrence: IT)
  Receive Date: 20140701
  Receipt Date: 20140918
  Transmission Date: 20150326
  Serious: Yes (Hospitalization, Other)
  Sender: FDA-Public Use
  Company Number: IT-BRISTOL-MYERS SQUIBB COMPANY-21061056

PATIENT
  Age: 82 Year
  Sex: Male

DRUGS (3)
  1. APROVEL TABS 150 MG [Concomitant]
     Active Substance: IRBESARTAN
     Route: 048
  2. COUMADIN [Suspect]
     Active Substance: WARFARIN SODIUM
     Indication: ATRIAL FIBRILLATION
     Route: 048
     Dates: start: 20090714, end: 20140615
  3. FINASTID [Concomitant]
     Dosage: FINASTID 5 MG TABS.
     Route: 048

REACTIONS (2)
  - Subdural haematoma [Recovering/Resolving]
  - Fall [Unknown]

NARRATIVE: CASE EVENT DATE: 20140531
